FAERS Safety Report 24254249 (Version 1)
Quarter: 2024Q3

REPORT INFORMATION
  Report Type: Spontaneous
  Country: US (occurrence: None)
  Receive Date: 20240826
  Receipt Date: 20240826
  Transmission Date: 20241017
  Serious: No
  Sender: Public
  Company Number: None

PATIENT

DRUGS (1)
  1. SODIUM TETRADECYL SULFATE [Suspect]
     Active Substance: SODIUM TETRADECYL SULFATE

REACTIONS (11)
  - Incorrect route of product administration [None]
  - Drug monitoring procedure not performed [None]
  - Iatrogenic injury [None]
  - Phlebosclerosis [None]
  - Venous injury [None]
  - Back pain [None]
  - Thrombosis [None]
  - Wrong technique in product usage process [None]
  - Product confusion [None]
  - Product label issue [None]
  - Product communication issue [None]
